FAERS Safety Report 22294092 (Version 1)
Quarter: 2023Q2

REPORT INFORMATION
  Report Type: Spontaneous
  Country: US (occurrence: None)
  Receive Date: 20230505
  Receipt Date: 20230505
  Transmission Date: 20230722
  Serious: Yes (Other)
  Sender: FDA-Public Use
  Company Number: None

PATIENT
  Sex: Female

DRUGS (1)
  1. CAPECITABINE [Suspect]
     Active Substance: CAPECITABINE
     Dosage: FREQUENCY : DAILY;?
     Route: 048

REACTIONS (5)
  - Eye haemorrhage [None]
  - Vaginal haemorrhage [None]
  - Vaginal discharge [None]
  - Off label use [None]
  - Stomatitis [None]
